FAERS Safety Report 12518278 (Version 1)
Quarter: 2016Q2

REPORT INFORMATION
  Report Type: Report from Study
  Country: CA (occurrence: CA)
  Receive Date: 20160630
  Receipt Date: 20160630
  Transmission Date: 20160815
  Serious: Yes (Life-Threatening, Hospitalization)
  Sender: FDA-Public Use
  Company Number: CA-JNJFOC-20160607890

PATIENT
  Age: 21 Year
  Sex: Female
  Weight: 76.1 kg

DRUGS (18)
  1. REMICADE [Suspect]
     Active Substance: INFLIXIMAB
     Indication: TENDONITIS
     Dosage: REPORTED AS ONCE EVERY 2/52 WEEKS
     Route: 042
     Dates: start: 20160526
  2. TEGRETOL [Suspect]
     Active Substance: CARBAMAZEPINE
     Indication: TRIGEMINAL NEURALGIA
     Dosage: TAKE 2 TABS AT 6:00 AM, 6:00 PM AND TAKE 1 1/2 TABS AT NOON AND MIDNIGHT (30 DAYS, 8 REFILLS).
     Route: 065
  3. AMOXICILLIN. [Concomitant]
     Active Substance: AMOXICILLIN
     Dosage: UNTIL FINISHED (10 DAYS)
     Route: 065
  4. REMICADE [Suspect]
     Active Substance: INFLIXIMAB
     Indication: TENDONITIS
     Route: 042
     Dates: start: 20160621
  5. METHOTREXATE [Suspect]
     Active Substance: METHOTREXATE
     Indication: PRODUCT USED FOR UNKNOWN INDICATION
     Dosage: 2 TABLETS IN MORNING AND 2 TABLETS IN THE EVENING. (DAYS-28, REFILLS-11)
     Route: 048
     Dates: start: 20160602, end: 20160613
  6. REMICADE [Suspect]
     Active Substance: INFLIXIMAB
     Indication: ANKYLOSING SPONDYLITIS
     Dosage: REPORTED AS ONCE EVERY 2/52 WEEKS
     Route: 042
     Dates: start: 20160526
  7. REMICADE [Suspect]
     Active Substance: INFLIXIMAB
     Indication: ANKYLOSING SPONDYLITIS
     Route: 042
     Dates: start: 20160621
  8. METHOTREXATE [Suspect]
     Active Substance: METHOTREXATE
     Indication: PRODUCT USED FOR UNKNOWN INDICATION
     Dosage: 2 TABLETS IN MORNING AND 2 TABLETS IN THE EVENING (DAYS-28, REFILLS-12)
     Route: 048
  9. TEGRETOL [Suspect]
     Active Substance: CARBAMAZEPINE
     Indication: TRIGEMINAL NEURALGIA
     Dosage: TAKE 2 TABS AT 6:00 AM, 6:00 PM AND TAKE 1 1/2 TABS AT NOON AND MIDNIGHT (30 DAYS, 6 REFILLS).
     Route: 065
  10. APO FOLIC [Concomitant]
     Dosage: 1 TABLET DAILY BY MOUTH EXCEPT ON THE DAY OF METHOTREXATE (DAYS-30, REFILLS-11)
     Route: 048
  11. TEGRETOL [Suspect]
     Active Substance: CARBAMAZEPINE
     Indication: TRIGEMINAL NEURALGIA
     Dosage: TAKE 2 TABS AT 6:00 AM, 6:00 PM AND TAKE 1 1/2 TABS AT NOON AND MIDNIGHT (30 DAYS, 5 REFILLS).
     Route: 065
     Dates: start: 20160602
  12. LORAZEPAM. [Concomitant]
     Active Substance: LORAZEPAM
     Dosage: WHEN NEEDED
     Route: 065
  13. REMICADE [Suspect]
     Active Substance: INFLIXIMAB
     Indication: TRIGEMINAL NEURALGIA
     Route: 042
     Dates: start: 20160621
  14. CYCLOBENZAPRINE [Concomitant]
     Active Substance: CYCLOBENZAPRINE
     Indication: MUSCLE RELAXANT THERAPY
     Dosage: BEDTIME
     Route: 065
  15. CLINDAMYCIN HCL [Concomitant]
     Active Substance: CLINDAMYCIN HYDROCHLORIDE
     Dosage: UNTIL FINISHED (10 DAYS)
     Route: 065
  16. REMICADE [Suspect]
     Active Substance: INFLIXIMAB
     Indication: TRIGEMINAL NEURALGIA
     Dosage: REPORTED AS ONCE EVERY 2/52 WEEKS
     Route: 042
     Dates: start: 20160526
  17. TEGRETOL [Suspect]
     Active Substance: CARBAMAZEPINE
     Indication: TRIGEMINAL NEURALGIA
     Dosage: TAKE 2 TABS AT 6:00 AM, 6:00 PM AND TAKE 1 1/2 TABS AT NOON AND MIDNIGHT (30 DAYS, 7 REFILLS).
     Route: 065
  18. APO FOLIC [Concomitant]
     Dosage: 1 TABLET DAILY BY MOUTH EXCEPT ON THE DAY OF METHOTREXATE (DAYS-30, REFILLS-10)
     Route: 048

REACTIONS (16)
  - Product use issue [Unknown]
  - Arthralgia [Unknown]
  - Pruritus [Unknown]
  - Dry skin [Unknown]
  - Abdominal pain lower [Unknown]
  - Hypersensitivity [Unknown]
  - Infusion related reaction [Unknown]
  - Ocular hyperaemia [Unknown]
  - Urticaria [Not Recovered/Not Resolved]
  - Muscular weakness [Unknown]
  - Off label use [Unknown]
  - Muscle rigidity [Unknown]
  - Flushing [Unknown]
  - Musculoskeletal stiffness [Unknown]
  - Nausea [Unknown]
  - Muscle spasms [Unknown]

NARRATIVE: CASE EVENT DATE: 20160526
